FAERS Safety Report 13307086 (Version 1)
Quarter: 2017Q1

REPORT INFORMATION
  Report Type: Spontaneous
  Country: US (occurrence: US)
  Receive Date: 20170308
  Receipt Date: 20170308
  Transmission Date: 20170428
  Serious: No
  Sender: FDA-Public Use
  Company Number: US-ASTRAZENECA-2017SE21359

PATIENT
  Age: 25051 Day
  Sex: Female
  Weight: 72.6 kg

DRUGS (13)
  1. MELOXICAM. [Concomitant]
     Active Substance: MELOXICAM
     Indication: PAIN
     Route: 048
  2. MELOXICAM. [Concomitant]
     Active Substance: MELOXICAM
     Indication: INFLAMMATION
     Route: 048
  3. METFORMIN [Concomitant]
     Active Substance: METFORMIN HYDROCHLORIDE
     Indication: BLOOD GLUCOSE INCREASED
     Route: 048
  4. PROAIR HFA [Concomitant]
     Active Substance: ALBUTEROL SULFATE
     Indication: SNEEZING
     Dosage: 90 UG, 2 PUFFS PRN
     Route: 055
  5. ASPIRIN. [Concomitant]
     Active Substance: ASPIRIN
     Indication: BLOOD CHOLESTEROL
     Dosage: 81.0MG AS REQUIRED
     Route: 048
  6. CRESTOR [Suspect]
     Active Substance: ROSUVASTATIN CALCIUM
     Indication: BLOOD CHOLESTEROL INCREASED
     Route: 048
  7. SYSTANE (HYPROMELLOSE 2910 (4000 MPA.S)) [Concomitant]
     Active Substance: HYPROMELLOSE 2910 (4000 MPA.S)
     Indication: DRY EYE
     Dosage: AS REQUIRED
     Route: 047
  8. CRESTOR [Suspect]
     Active Substance: ROSUVASTATIN CALCIUM
     Indication: BLOOD CHOLESTEROL INCREASED
     Route: 048
  9. ERGOCALCIFEROL. [Concomitant]
     Active Substance: ERGOCALCIFEROL
     Indication: PAIN
     Route: 048
  10. LOSARTAN. [Concomitant]
     Active Substance: LOSARTAN
     Indication: BLOOD PRESSURE MEASUREMENT
     Dosage: WAS INCREASED FROM 25 TO 50 MG IN JAN 2017
     Route: 048
  11. CRESTOR [Suspect]
     Active Substance: ROSUVASTATIN CALCIUM
     Indication: BLOOD CHOLESTEROL INCREASED
     Dosage: GENERIC,5 MG, EVERY OTHER DAY
     Route: 048
     Dates: start: 201702
  12. LEVOTHYROXINE. [Concomitant]
     Active Substance: LEVOTHYROXINE
     Indication: THYROID DISORDER
     Route: 048
  13. PROAIR HFA [Concomitant]
     Active Substance: ALBUTEROL SULFATE
     Indication: COUGH
     Dosage: 90 UG, 2 PUFFS PRN
     Route: 055

REACTIONS (16)
  - Pain [Recovered/Resolved]
  - Nasopharyngitis [Unknown]
  - Intentional product misuse [Recovered/Resolved with Sequelae]
  - Insomnia [Recovered/Resolved]
  - Muscular weakness [Recovered/Resolved]
  - Muscular weakness [Unknown]
  - Dry eye [Unknown]
  - Impaired driving ability [Recovered/Resolved]
  - Activities of daily living impaired [Recovered/Resolved]
  - Blood triglycerides increased [Unknown]
  - Vitamin D deficiency [Unknown]
  - Arthralgia [Recovering/Resolving]
  - Off label use [Unknown]
  - Blood cholesterol increased [Unknown]
  - Myalgia [Recovering/Resolving]
  - Osteoarthritis [Unknown]

NARRATIVE: CASE EVENT DATE: 201701
